FAERS Safety Report 7388319 (Version 16)
Quarter: 2014Q1

REPORT INFORMATION
  Report Type: Spontaneous
  Country: US (occurrence: US)
  Receive Date: 20100514
  Receipt Date: 20140130
  Transmission Date: 20141002
  Serious: Yes (Hospitalization, Other)
  Sender: FDA-Public Use
  Company Number: PHEH2010US03426

PATIENT
  Sex: Female
  Weight: 56 kg

DRUGS (42)
  1. AREDIA [Suspect]
     Indication: METASTASES TO BONE
     Dates: start: 199903, end: 199908
  2. ZOMETA [Suspect]
  3. IBUPROFEN [Concomitant]
  4. OXYCONTIN [Concomitant]
  5. TAMOXIFEN [Concomitant]
  6. DEXAMETHASONE [Concomitant]
  7. NEUPOGEN [Concomitant]
  8. HERCEPTIN [Concomitant]
  9. BENADRYL [Concomitant]
  10. ZANTAC [Concomitant]
  11. TAXOL [Concomitant]
  12. DECADRON                                /CAN/ [Concomitant]
     Dosage: 10 MG,
     Route: 042
  13. TAXOTERE [Concomitant]
     Dosage: 45 MG,
     Route: 042
  14. K-DUR [Concomitant]
  15. MEGACE [Concomitant]
  16. MORPHINE [Concomitant]
  17. PERIDEX [Concomitant]
  18. DURAGESIC [Concomitant]
  19. FENTANYL [Concomitant]
  20. MEGASTROL [Concomitant]
  21. PAXIL [Concomitant]
  22. CLONAZEPAM [Concomitant]
  23. HYDROCODONE [Concomitant]
  24. AMBIEN [Concomitant]
  25. BUSPIRONE [Concomitant]
  26. PRILOSEC [Concomitant]
  27. KEFLEX [Concomitant]
  28. ELAVIL [Concomitant]
  29. PROMETHAZINE [Concomitant]
  30. ZOFRAN [Concomitant]
  31. LISINOPRIL [Concomitant]
     Dosage: 10 MG, QD
  32. LOVASTATIN [Concomitant]
     Dosage: 40 MG, QD
  33. WELLBUTRIN [Concomitant]
     Dosage: 150 MG, BID
  34. NAVELBINE [Concomitant]
  35. XELODA [Concomitant]
  36. TYKERB [Concomitant]
  37. DIAZEPAM [Concomitant]
     Dosage: 5 MG, TID
  38. HEPARIN [Concomitant]
  39. NAPROXEN [Concomitant]
  40. ROSUVASTATIN [Concomitant]
  41. DOCUSATE [Concomitant]
  42. ALTEPLASE [Concomitant]

REACTIONS (112)
  - Gastrointestinal haemorrhage [Unknown]
  - Haematochezia [Unknown]
  - Neuropathy peripheral [Unknown]
  - Osteonecrosis of jaw [Unknown]
  - Injury [Unknown]
  - Disability [Unknown]
  - Pain [Unknown]
  - Anxiety [Unknown]
  - Bone fragmentation [Unknown]
  - Exposed bone in jaw [Unknown]
  - Anhedonia [Unknown]
  - Osteomyelitis [Unknown]
  - Neoplasm progression [Unknown]
  - Malignant neoplasm progression [Unknown]
  - Bone lesion [Unknown]
  - Compression fracture [Unknown]
  - Osteoarthritis [Unknown]
  - Back pain [Unknown]
  - Neutropenia [Unknown]
  - Suicide attempt [Unknown]
  - Hyperglycaemia [Unknown]
  - Cardiac failure chronic [Unknown]
  - Left ventricular dysfunction [Unknown]
  - Sinus tachycardia [Unknown]
  - Cardiomyopathy [Unknown]
  - Renal failure [Unknown]
  - Oedema peripheral [Unknown]
  - Intestinal ulcer [Unknown]
  - Colitis ulcerative [Unknown]
  - Benign gastric neoplasm [Unknown]
  - Hyperlipidaemia [Unknown]
  - Hypotension [Unknown]
  - Anaemia [Unknown]
  - Blood cholesterol increased [Unknown]
  - Gastritis [Unknown]
  - Hypertension [Unknown]
  - Constipation [Unknown]
  - Dyspepsia [Unknown]
  - Pyrexia [Unknown]
  - Wound [Unknown]
  - Depression [Unknown]
  - Musculoskeletal chest pain [Unknown]
  - Diarrhoea [Unknown]
  - Abdominal pain upper [Unknown]
  - Radiculopathy [Unknown]
  - Weight increased [Unknown]
  - Fatigue [Unknown]
  - Musculoskeletal stiffness [Unknown]
  - Arthralgia [Unknown]
  - Muscle strain [Unknown]
  - Fall [Unknown]
  - Hypokalaemia [Unknown]
  - Chills [Unknown]
  - Pain in jaw [Unknown]
  - Palmar-plantar erythrodysaesthesia syndrome [Unknown]
  - Kyphosis [Unknown]
  - Dysuria [Unknown]
  - Pathological fracture [Unknown]
  - Hip fracture [Unknown]
  - Urinary retention [Unknown]
  - Arteriosclerosis [Unknown]
  - Hiatus hernia [Unknown]
  - Headache [Unknown]
  - Tricuspid valve incompetence [Unknown]
  - Hypoaesthesia [Unknown]
  - Aortic valve incompetence [Unknown]
  - Ejection fraction decreased [Unknown]
  - Pericardial effusion [Unknown]
  - Hepatitis B [Unknown]
  - Pelvic fracture [Unknown]
  - Groin pain [Unknown]
  - Abdominal hernia [Unknown]
  - Gait disturbance [Unknown]
  - Fear [Unknown]
  - Bladder disorder [Unknown]
  - Vision blurred [Unknown]
  - Gastric polyps [Unknown]
  - Arthrofibrosis [Unknown]
  - Abnormal loss of weight [Unknown]
  - Dyspnoea [Unknown]
  - Tooth loss [Unknown]
  - Spinal compression fracture [Unknown]
  - Skin lesion [Unknown]
  - Decubitus ulcer [Unknown]
  - Peptic ulcer [Unknown]
  - Atrophic vulvovaginitis [Unknown]
  - Osteopenia [Unknown]
  - Heart rate irregular [Unknown]
  - Upper respiratory tract infection [Unknown]
  - Nausea [Unknown]
  - Chronic obstructive pulmonary disease [Unknown]
  - Sinus disorder [Unknown]
  - Osteosclerosis [Unknown]
  - Ilium fracture [Unknown]
  - Pubis fracture [Unknown]
  - Oral infection [Unknown]
  - Metastases to spine [Unknown]
  - Jaundice [Unknown]
  - Urinary tract infection [Unknown]
  - Dysphagia [Unknown]
  - Joint effusion [Unknown]
  - Aortic arteriosclerosis [Unknown]
  - Mitral valve incompetence [Unknown]
  - Bronchitis [Unknown]
  - Onychomycosis [Unknown]
  - Nail discolouration [Unknown]
  - Ventricular hypokinesia [Unknown]
  - Intervertebral disc protrusion [Unknown]
  - Cardiac failure congestive [Unknown]
  - Ischaemia [Unknown]
  - Blister [Unknown]
  - Dizziness [Unknown]
